FAERS Safety Report 8993397 (Version 1)
Quarter: 2013Q1

REPORT INFORMATION
  Report Type: Spontaneous
  Country: US (occurrence: US)
  Receive Date: 20130102
  Receipt Date: 20130102
  Transmission Date: 20140127
  Serious: Yes (Other)
  Sender: FDA-Public Use
  Company Number: CHPA2012US025703

PATIENT
  Age: 79 Year
  Sex: Female

DRUGS (2)
  1. MYOFLEX ANALGESIC CREME [Suspect]
     Indication: PAIN
     Dosage: 2 OR 3 TIMES A DAY
     Route: 061
     Dates: start: 2001
  2. CHOLESTEROL\TRIGLYCERIDE DECANOATE [Suspect]
     Indication: BLOOD CHOLESTEROL INCREASED
     Dosage: UNK, UNK
     Dates: start: 1985, end: 2005

REACTIONS (7)
  - Ovarian cancer [Recovered/Resolved]
  - Metastasis [Recovered/Resolved]
  - Hernia [Recovered/Resolved]
  - Cardiac disorder [Not Recovered/Not Resolved]
  - Insomnia [Not Recovered/Not Resolved]
  - Disease recurrence [Recovered/Resolved]
  - Incorrect drug administration duration [Unknown]
